FAERS Safety Report 5593312-X (Version None)
Quarter: 2008Q1

REPORT INFORMATION
  Report Type: 
  Country: None (occurrence: None)
  Receive Date: 20080116
  Receipt Date: 20080109
  Transmission Date: 20080703
  Serious: Yes (Hospitalization)
  Sender: FDA-Public Use
  Company Number: B0502235A

PATIENT
  Age: 62 Year
  Sex: Female

DRUGS (1)
  1. AUGMENTIN '125' [Suspect]
     Indication: COUGH
     Dosage: 1UNIT PER DAY
     Route: 048
     Dates: start: 20071208, end: 20071208

REACTIONS (3)
  - GENERALISED ERYTHEMA [None]
  - HYPOTENSION [None]
  - PRURITUS [None]
